FAERS Safety Report 25677187 (Version 1)
Quarter: 2025Q3

REPORT INFORMATION
  Report Type: Spontaneous
  Country: US (occurrence: US)
  Receive Date: 20250813
  Receipt Date: 20250813
  Transmission Date: 20251020
  Serious: No
  Sender: SANOFI AVENTIS
  Company Number: US-SA-2025SA236034

PATIENT
  Sex: Male

DRUGS (15)
  1. DUPIXENT [Suspect]
     Active Substance: DUPILUMAB
     Indication: Asthma
     Dosage: 300 MG, QOW
     Route: 058
  2. CLINDAMYCIN [Concomitant]
     Active Substance: CLINDAMYCIN
  3. VITAMIN B12 [Concomitant]
     Active Substance: CYANOCOBALAMIN
  4. EZETIMIBE [Concomitant]
     Active Substance: EZETIMIBE
  5. FARXIGA [Concomitant]
     Active Substance: DAPAGLIFLOZIN PROPANEDIOL
  6. FIORICET [Concomitant]
     Active Substance: ACETAMINOPHEN\BUTALBITAL\CAFFEINE
  7. HYDROCODONE [Concomitant]
     Active Substance: HYDROCODONE
  8. NEBIVOLOL [Concomitant]
     Active Substance: NEBIVOLOL
  9. NEXLETOL [Concomitant]
     Active Substance: BEMPEDOIC ACID
  10. PANTOPRAZOLE [Concomitant]
     Active Substance: PANTOPRAZOLE
  11. TICAGRELOR [Concomitant]
     Active Substance: TICAGRELOR
  12. TRAMADOL [Concomitant]
     Active Substance: TRAMADOL
  13. VERQUVO [Concomitant]
     Active Substance: VERICIGUAT
  14. VYVANSE [Concomitant]
     Active Substance: LISDEXAMFETAMINE DIMESYLATE
  15. RANOLAZINE [Concomitant]
     Active Substance: RANOLAZINE

REACTIONS (6)
  - Blood glucose increased [Unknown]
  - Haemorrhage [Unknown]
  - Depression [Unknown]
  - Headache [Unknown]
  - Polypectomy [Unknown]
  - Product dose omission in error [Unknown]
